FAERS Safety Report 8316657-9 (Version None)
Quarter: 2012Q2

REPORT INFORMATION
  Report Type: 
  Country: None (occurrence: None)
  Receive Date: 20120427
  Receipt Date: 20120425
  Transmission Date: 20120825
  Serious: Yes (Death)
  Sender: FDA-Public Use
  Company Number: PHHY2012CA034178

PATIENT
  Sex: Female

DRUGS (5)
  1. PROTON PUMP INHIBITORS [Concomitant]
  2. FUROSEMIDE [Concomitant]
  3. ZOLEDRONOC ACID [Suspect]
     Indication: OSTEOPOROSIS
     Dosage: UNK
     Route: 042
     Dates: start: 20100601
  4. ACE INHIBITORS [Concomitant]
  5. ZOLEDRONOC ACID [Suspect]
     Dosage: UNK
     Route: 042
     Dates: start: 20120201

REACTIONS (5)
  - GASTRITIS [None]
  - CARDIAC FAILURE [None]
  - WEIGHT DECREASED [None]
  - OESOPHAGITIS [None]
  - ANAEMIA [None]
